FAERS Safety Report 4614821-3 (Version None)
Quarter: 2005Q1

REPORT INFORMATION
  Report Type: 
  Country: None (occurrence: None)
  Receive Date: 20050322
  Receipt Date: 20050316
  Transmission Date: 20050727
  Serious: Yes (Hospitalization)
  Sender: FDA-Public Use
  Company Number: BW-BRISTOL-MYERS SQUIBB COMPANY-12902508

PATIENT
  Age: 37 Year
  Sex: Female

DRUGS (3)
  1. EFAVIRENZ [Suspect]
  2. STAVUDINE [Suspect]
  3. LAMIVUDINE [Suspect]

REACTIONS (1)
  - DEEP VEIN THROMBOSIS [None]
